FAERS Safety Report 8408433-3 (Version None)
Quarter: 2012Q2

REPORT INFORMATION
  Report Type: 
  Country: None (occurrence: None)
  Receive Date: 20120604
  Receipt Date: 20120531
  Transmission Date: 20120825
  Serious: No
  Sender: FDA-Public Use
  Company Number: US-TEVA-341087USA

PATIENT
  Sex: Female
  Weight: 104.42 kg

DRUGS (5)
  1. HYDROCHLOROTHIAZIDE [Concomitant]
     Indication: BLOOD PRESSURE
  2. ANTIHYPERTENSIVE [Concomitant]
     Indication: HYPERTENSION
  3. ANTIHYPERTENSIVE [Concomitant]
  4. ANTIHYPERTENSIVE [Concomitant]
  5. PLAN B ONE-STEP [Suspect]
     Indication: POST COITAL CONTRACEPTION
     Dosage: 1.5 MILLIGRAM;
     Route: 048
     Dates: start: 20120528, end: 20120528

REACTIONS (1)
  - FATIGUE [None]
